FAERS Safety Report 6018748-4 (Version None)
Quarter: 2008Q4

REPORT INFORMATION
  Report Type: 
  Country: None (occurrence: None)
  Receive Date: 20081222
  Receipt Date: 20081210
  Transmission Date: 20090506
  Serious: Yes (Hospitalization)
  Sender: FDA-Public Use
  Company Number: US025155

PATIENT
  Age: 40 Year
  Sex: Male
  Weight: 69.8539 kg

DRUGS (4)
  1. PROVIGIL [Suspect]
     Indication: DRUG DEPENDENCE
     Dosage: 400 MG QD ORAL
     Route: 048
     Dates: start: 20081006
  2. PLACEBO [Suspect]
     Indication: DRUG DEPENDENCE
     Dosage: 400 MG QD ORAL
     Route: 048
     Dates: start: 20081006
  3. VICKS COUGH /00482701/ [Concomitant]
  4. TYLENOL (CAPLET) [Concomitant]

REACTIONS (1)
  - HAEMORRHOIDS [None]
